FAERS Safety Report 7646918-8 (Version None)
Quarter: 2011Q3

REPORT INFORMATION
  Report Type: 
  Country: None (occurrence: None)
  Receive Date: 20110801
  Receipt Date: 20110722
  Transmission Date: 20111222
  Serious: Yes (Hospitalization, Other)
  Sender: FDA-Public Use
  Company Number: US-SANOFI-AVENTIS-2011SA039835

PATIENT
  Age: 51 Year
  Sex: Male
  Weight: 121.56 kg

DRUGS (6)
  1. COREG [Concomitant]
  2. LOSARTAN POTASSIUM [Concomitant]
     Indication: HYPERTENSION
  3. ATORVASTATIN [Suspect]
     Route: 065
  4. MULTAQ [Suspect]
     Route: 048
     Dates: start: 20110411
  5. ASPIRIN [Concomitant]
     Indication: ANTIPLATELET THERAPY
  6. INDAPAMIDE [Concomitant]
     Indication: HYPERTENSION

REACTIONS (4)
  - RHABDOMYOLYSIS [None]
  - BLOOD CREATINE PHOSPHOKINASE INCREASED [None]
  - FATIGUE [None]
  - DIZZINESS [None]
